FAERS Safety Report 7285306-3 (Version None)
Quarter: 2011Q1

REPORT INFORMATION
  Report Type: 
  Country: None (occurrence: None)
  Receive Date: 20110121
  Receipt Date: 20091221
  Transmission Date: 20110831
  Serious: No
  Sender: FDA-Public Use
  Company Number: AE 2009-171

PATIENT
  Sex: Female
  Weight: 73.4827 kg

DRUGS (6)
  1. ADDERALL XR 10 [Concomitant]
  2. FISH OIL [Concomitant]
  3. OCELLA [Concomitant]
  4. FAZACLO ODT [Suspect]
     Indication: PSYCHOTIC DISORDER
     Dosage: 250 MG DAILY PO
     Route: 048
     Dates: start: 20091203
  5. FAZACLO ODT [Suspect]
     Indication: BIPOLAR DISORDER
     Dosage: 250 MG DAILY PO
     Route: 048
     Dates: start: 20091203
  6. LAMICTAL [Concomitant]

REACTIONS (2)
  - DRUG LEVEL INCREASED [None]
  - ORTHOSTATIC HYPOTENSION [None]
